FAERS Safety Report 21459263 (Version 2)
Quarter: 2022Q4

REPORT INFORMATION
  Report Type: Report from Study
  Country: HU (occurrence: HU)
  Receive Date: 20221014
  Receipt Date: 20221103
  Transmission Date: 20230113
  Serious: Yes (Hospitalization)
  Sender: FDA-Public Use
  Company Number: HU-JNJFOC-20221012999

PATIENT
  Age: 50 Year
  Sex: Female
  Weight: 57 kg

DRUGS (1)
  1. ESKETAMINE [Suspect]
     Active Substance: ESKETAMINE
     Indication: Major depression
     Dates: start: 20180212, end: 20220928

REACTIONS (1)
  - Ligament rupture [Recovered/Resolved]

NARRATIVE: CASE EVENT DATE: 20220929
